FAERS Safety Report 4433811-7 (Version None)
Quarter: 2004Q3

REPORT INFORMATION
  Report Type: 
  Country: None (occurrence: None)
  Receive Date: 20040825
  Receipt Date: 20040805
  Transmission Date: 20050211
  Serious: Yes (Hospitalization)
  Sender: FDA-Public Use
  Company Number: A02200402402

PATIENT
  Age: 14 Year
  Sex: Female

DRUGS (7)
  1. ZOLPIDEM TARTRATE [Suspect]
     Indication: SUICIDE ATTEMPT
     Dosage: 140 MG ONCE
     Route: 048
     Dates: start: 20040411, end: 20040411
  2. ADVIL [Suspect]
     Indication: SUICIDE ATTEMPT
     Dosage: 10000 MG ONCE
     Route: 048
     Dates: start: 20040411, end: 20040411
  3. DEXTROPROPOXYPHENE/PARACETAMOL - (DEXTROPROPOXYPHENE/PARACETAMOL) - CA [Suspect]
     Indication: SUICIDE ATTEMPT
     Dosage: 8600 MG ONCE
     Route: 048
     Dates: start: 20040411, end: 20040411
  4. DOLIPRANE - (PARACETAMOL) - TABLET - 6 MG [Suspect]
     Indication: SUICIDE ATTEMPT
     Dosage: 19 UNIT ONCE
     Route: 048
     Dates: start: 20040411, end: 20040411
  5. LEXOMIL - (BROMAZEPAM) - TABLET - 6 MG [Suspect]
     Indication: SUICIDE ATTEMPT
     Dosage: 12 MG ONCE
     Route: 048
     Dates: start: 20040411, end: 20040411
  6. OROPIVALONE - (TIXOCORTOL+BACITRACINE) - TABLET - 1 UNIT [Suspect]
     Indication: SUICIDE ATTEMPT
     Route: 048
     Dates: start: 20040411, end: 20040411
  7. ISOTRETINOIN [Concomitant]

REACTIONS (5)
  - HYPOKALAEMIA [None]
  - INTENTIONAL OVERDOSE [None]
  - SOMNOLENCE [None]
  - SUICIDE ATTEMPT [None]
  - VOMITING [None]
